FAERS Safety Report 6707989-6 (Version None)
Quarter: 2010Q2

REPORT INFORMATION
  Report Type: 
  Country: None (occurrence: None)
  Receive Date: 20100503
  Receipt Date: 20081103
  Transmission Date: 20101027
  Serious: Yes (Other)
  Sender: FDA-Public Use
  Company Number: BR-BAYER-200811156LA

PATIENT
  Age: 48 Year
  Sex: Female

DRUGS (18)
  1. BETAFERON [Suspect]
     Indication: MULTIPLE SCLEROSIS
     Dosage: BETAJECT
     Route: 058
     Dates: start: 20050401
  2. AVANDIA [Concomitant]
     Indication: DIABETES MELLITUS
     Dosage: TOTAL DAILY DOSE: 8 MG  UNIT DOSE: 8 MG
     Route: 048
     Dates: start: 20020101
  3. METFORMIN HCL [Concomitant]
     Indication: DIABETES MELLITUS
     Dosage: TOTAL DAILY DOSE: 2550 MG  UNIT DOSE: 850 MG
     Route: 048
     Dates: start: 19900101
  4. DIAZEPAM [Concomitant]
     Indication: MUSCLE SPASMS
     Route: 048
     Dates: start: 19910101
  5. TEGRETOL [Concomitant]
     Indication: MUSCLE SPASMS
     Dosage: TOTAL DAILY DOSE: 600 MG
     Route: 048
     Dates: start: 19910101
  6. LIORESAL [Concomitant]
     Indication: MUSCLE SPASMS
     Dates: start: 19910101
  7. SIRDALUD [Concomitant]
     Indication: MUSCLE RELAXANT THERAPY
     Route: 065
     Dates: start: 19910101
  8. AMITRIPTYLINE HCL [Concomitant]
     Indication: ANTIDEPRESSANT THERAPY
     Dosage: TOTAL DAILY DOSE: 150 MG  UNIT DOSE: 25 MG
     Route: 048
     Dates: start: 19910101
  9. DORMONID [Concomitant]
     Indication: INSOMNIA
     Dosage: TOTAL DAILY DOSE: 45 MG
     Route: 048
     Dates: start: 19910101
  10. OLCADIL [Concomitant]
     Indication: INSOMNIA
     Dosage: TOTAL DAILY DOSE: 6 MG
     Dates: start: 19910101
  11. MACRODANTINA [Concomitant]
     Indication: ANTIINFLAMMATORY THERAPY
     Dosage: AS USED: 100 MG
     Route: 048
     Dates: start: 20070101
  12. SIMVASTATIN [Concomitant]
     Indication: BLOOD CHOLESTEROL ABNORMAL
     Dosage: TOTAL DAILY DOSE: 10 MG
     Route: 048
     Dates: start: 20050101
  13. OMEPRAZOLE [Concomitant]
     Indication: GASTRIC DISORDER
     Dosage: TOTAL DAILY DOSE: 2 DF
     Route: 048
     Dates: start: 20060101
  14. SERTRALINE HCL [Concomitant]
     Indication: ANTIDEPRESSANT THERAPY
     Dosage: TOTAL DAILY DOSE: 3 DF
     Route: 048
     Dates: start: 20050101
  15. VASOPRIL [Concomitant]
     Indication: HYPERTENSION
     Dosage: TOTAL DAILY DOSE: 20 MG
     Route: 048
     Dates: start: 19900101
  16. DIMETICONE [Concomitant]
     Indication: FLATULENCE
     Dosage: TOTAL DAILY DOSE: 40 MG
     Route: 048
     Dates: start: 20070101
  17. ALMEIDA PRADO 46 [Concomitant]
     Indication: GASTROINTESTINAL DISORDER
     Dosage: 2 TABS / EVERY 4 DAYS
     Route: 048
     Dates: start: 20080101
  18. GLYBURIDE [Concomitant]
     Indication: DIABETES MELLITUS
     Dosage: TOTAL DAILY DOSE: 15 MG  UNIT DOSE: 5 MG
     Route: 048
     Dates: start: 20080801

REACTIONS (14)
  - DEPRESSION [None]
  - FATIGUE [None]
  - FORMICATION [None]
  - HYPOAESTHESIA [None]
  - INJECTION SITE ERYTHEMA [None]
  - INJECTION SITE MASS [None]
  - INJECTION SITE PAIN [None]
  - MULTIPLE SCLEROSIS [None]
  - MULTIPLE SCLEROSIS RELAPSE [None]
  - MUSCLE SPASMS [None]
  - NASAL DISORDER [None]
  - PAIN [None]
  - PAIN IN EXTREMITY [None]
  - SYNCOPE [None]
